FAERS Safety Report 5054489-8 (Version None)
Quarter: 2006Q3

REPORT INFORMATION
  Report Type: 
  Country: None (occurrence: None)
  Receive Date: 20060713
  Receipt Date: 20060629
  Transmission Date: 20061208
  Serious: Yes (Hospitalization)
  Sender: FDA-Public Use
  Company Number: 163-20785-06070092

PATIENT
  Age: 50 Year
  Sex: Male

DRUGS (2)
  1. THALOMID [Suspect]
     Indication: GAMMOPATHY
     Dosage: SEE IMAGE
     Route: 048
     Dates: start: 20040706
  2. THALOMID [Suspect]
     Indication: GAMMOPATHY
     Dosage: SEE IMAGE
     Route: 048
     Dates: start: 20050412

REACTIONS (4)
  - HIP ARTHROPLASTY [None]
  - INFECTION [None]
  - POST PROCEDURAL COMPLICATION [None]
  - PYREXIA [None]
